FAERS Safety Report 19419139 (Version 1)
Quarter: 2021Q2

REPORT INFORMATION
  Report Type: Spontaneous
  Country: US (occurrence: US)
  Receive Date: 20210615
  Receipt Date: 20210615
  Transmission Date: 20210717
  Serious: Yes (Life-Threatening, Hospitalization)
  Sender: FDA-Public Use
  Company Number: US-MYLANLABS-2021M1034305

PATIENT
  Age: 48 Year
  Sex: Male

DRUGS (4)
  1. HEPARIN [Suspect]
     Active Substance: HEPARIN SODIUM
     Dosage: 400 INTERNATIONAL UNIT/KILOGRAM
     Route: 058
  2. HEPARIN [Suspect]
     Active Substance: HEPARIN SODIUM
     Indication: THROMBOSIS PROPHYLAXIS
     Dosage: 7500 INTERNATIONAL UNIT, Q8H
     Route: 058
  3. ANTITHROMBIN III [Concomitant]
     Active Substance: ANTITHROMBIN III HUMAN
     Indication: ANTITHROMBIN III DEFICIENCY
     Dosage: 2415 INTERNATIONAL UNIT
     Route: 065
  4. BIVALIRUDIN. [Concomitant]
     Active Substance: BIVALIRUDIN
     Indication: CARDIAC ARREST
     Dosage: 0.1 MILLIGRAM/KILOGRAM, QH
     Route: 065

REACTIONS (4)
  - Compartment syndrome [Recovering/Resolving]
  - Thrombosis [Recovered/Resolved]
  - Heparin-induced thrombocytopenia [Recovered/Resolved]
  - Cardiac arrest [Recovering/Resolving]
